FAERS Safety Report 10441765 (Version 1)
Quarter: 2014Q3

REPORT INFORMATION
  Report Type: Spontaneous
  Country: BR (occurrence: BR)
  Receive Date: 20140908
  Receipt Date: 20140908
  Transmission Date: 20150326
  Serious: Yes (Other)
  Sender: FDA-Public Use
  Company Number: BR-PFIZER INC-2014247248

PATIENT
  Age: 34 Year
  Sex: Female
  Weight: 93 kg

DRUGS (3)
  1. FRONTAL [Suspect]
     Active Substance: ALPRAZOLAM
     Dosage: HALF OF A 2MG  TABLET (1 MG), UNSPECIFIED FREQUENCY
     Route: 048
  2. FRONTAL [Suspect]
     Active Substance: ALPRAZOLAM
     Dosage: 1/4 OF A TABLET OF 2MG (0.5 MG), UNSPECIFIED FREQUENCY
     Route: 048
  3. FRONTAL [Suspect]
     Active Substance: ALPRAZOLAM
     Indication: ANXIETY
     Dosage: 1 TABLET OF 2 MG, UNSPECIFIED FREQUENCY
     Route: 048
     Dates: start: 201003

REACTIONS (4)
  - Condition aggravated [Unknown]
  - Blood pressure increased [Unknown]
  - Drug ineffective [Unknown]
  - Bipolar disorder [Unknown]

NARRATIVE: CASE EVENT DATE: 201003
